FAERS Safety Report 5411840-4 (Version None)
Quarter: 2007Q3

REPORT INFORMATION
  Report Type: 
  Country: None (occurrence: None)
  Receive Date: 20070713
  Receipt Date: 20070319
  Transmission Date: 20080115
  Serious: No
  Sender: FDA-Public Use
  Company Number: 2007SP001015

PATIENT
  Age: 49 Year
  Sex: Female
  Weight: 58.0604 kg

DRUGS (7)
  1. LUNESTA [Suspect]
     Indication: INSOMNIA
     Dosage: 3 MG;HS;ORAL ; 2 MG;HS;ORAL
     Route: 048
     Dates: start: 20070201, end: 20070207
  2. LUNESTA [Suspect]
     Indication: INSOMNIA
     Dosage: 3 MG;HS;ORAL ; 2 MG;HS;ORAL
     Route: 048
     Dates: start: 20070207, end: 20070223
  3. ZOLOFT [Concomitant]
  4. LEXAPRO [Concomitant]
  5. OSCAL [Concomitant]
  6. CYMBALTA [Concomitant]
  7. CELEBREX [Concomitant]

REACTIONS (2)
  - DYSPNOEA [None]
  - SWELLING FACE [None]
